FAERS Safety Report 25658931 (Version 5)
Quarter: 2025Q4

REPORT INFORMATION
  Report Type: Spontaneous
  Country: EU (occurrence: EU)
  Receive Date: 20250808
  Receipt Date: 20251120
  Transmission Date: 20260117
  Serious: Yes (Death, Hospitalization, Other)
  Sender: AUROBINDO
  Company Number: EU-HIKMA PHARMACEUTICALS-ES-H14001-25-08852

PATIENT
  Age: 77 Year
  Sex: Male
  Weight: 59.8 kg

DRUGS (30)
  1. CARBOPLATIN [Suspect]
     Active Substance: CARBOPLATIN
     Indication: Non-small cell lung cancer
     Dosage: 405.98 MILLIGRAM
     Dates: start: 20241031, end: 20241031
  2. CARBOPLATIN [Suspect]
     Active Substance: CARBOPLATIN
     Dosage: 405.98 MILLIGRAM
     Dates: start: 20241121, end: 20241121
  3. CARBOPLATIN [Suspect]
     Active Substance: CARBOPLATIN
     Dosage: 405.98 MILLIGRAM
     Dates: start: 20241212, end: 20241212
  4. CARBOPLATIN [Suspect]
     Active Substance: CARBOPLATIN
     Dosage: 405.98 MILLIGRAM
  5. PEMETREXED [Suspect]
     Active Substance: PEMETREXED
     Indication: Non-small cell lung cancer
     Dosage: 500 MILLIGRAM/SQ. METER (500 MG/M2, TOTAL DOSE ADMINISTERED 865 MG)
     Dates: start: 20241212, end: 20241212
  6. PEMETREXED [Suspect]
     Active Substance: PEMETREXED
     Dosage: 500 MILLIGRAM/SQ. METER (500 MG/M2, TOTAL DOSE ADMINISTERED 865 MG)
     Dates: start: 20250102, end: 20250102
  7. PEMETREXED [Suspect]
     Active Substance: PEMETREXED
     Dosage: 500 MILLIGRAM/SQ. METER (500 MG/M2, TOTAL DOSE ADMINISTERED 865 MG)
     Dates: start: 20250123, end: 20250123
  8. PEMETREXED [Suspect]
     Active Substance: PEMETREXED
     Dosage: 500 MILLIGRAM/SQ. METER (500 MG/M2, TOTAL DOSE ADMINISTERED 865 MG)
     Dates: start: 20250213, end: 20250213
  9. PEMETREXED [Suspect]
     Active Substance: PEMETREXED
     Dosage: 500 MILLIGRAM/SQ. METER (500 MG/M2, TOTAL DOSE ADMINISTERED 865 MG)
     Dates: start: 20250306, end: 20250306
  10. PEMETREXED [Suspect]
     Active Substance: PEMETREXED
     Dosage: 500 MILLIGRAM/SQ. METER (500 MG/M2, TOTAL DOSE ADMINISTERED 865 MG)
     Dates: start: 20250424, end: 20250424
  11. PEMETREXED [Suspect]
     Active Substance: PEMETREXED
     Dosage: 500 MILLIGRAM/SQ. METER (500 MG/M2, TOTAL DOSE ADMINISTERED 865 MG)
     Dates: start: 20250521, end: 20250521
  12. PEMETREXED [Suspect]
     Active Substance: PEMETREXED
     Dosage: 500 MILLIGRAM/SQ. METER (500 MG/M2, TOTAL DOSE ADMINISTERED 865 MG)
     Dates: start: 20250611, end: 20250611
  13. ATROVENT [Concomitant]
     Active Substance: IPRATROPIUM BROMIDE
     Indication: Product used for unknown indication
     Dosage: UNK
     Route: 065
  14. ENSTILAR [BETAMETHASONE DIPROPIONATE;CALCIPOTRIOL] [Concomitant]
     Indication: Product used for unknown indication
     Dosage: UNK
     Route: 065
  15. ATORVASTATIN [Concomitant]
     Active Substance: ATORVASTATIN
     Indication: Product used for unknown indication
     Dosage: UNK
     Route: 065
  16. ACLIDINIUM BROMIDE [Concomitant]
     Active Substance: ACLIDINIUM BROMIDE
     Indication: Product used for unknown indication
     Dosage: UNK
     Route: 065
  17. FOLIC ACID [Concomitant]
     Active Substance: FOLIC ACID
     Indication: Product used for unknown indication
     Dosage: UNK
     Route: 065
  18. OPTOVIT E [Concomitant]
     Indication: Product used for unknown indication
     Dosage: UNK
     Route: 065
  19. OMEPRAZOLE [Concomitant]
     Active Substance: OMEPRAZOLE
     Indication: Product used for unknown indication
     Dosage: UNK
     Route: 065
  20. MYCOSTATIN [Concomitant]
     Active Substance: NYSTATIN
     Indication: Product used for unknown indication
     Dosage: UNK
     Route: 065
  21. FORMOTEROL FUMARATE [Concomitant]
     Active Substance: FORMOTEROL FUMARATE
     Indication: Product used for unknown indication
     Dosage: UNK
     Route: 065
  22. TINZAPARIN SODIUM [Concomitant]
     Active Substance: TINZAPARIN SODIUM
     Indication: Product used for unknown indication
     Dosage: UNK
     Route: 065
  23. GRANISETRON [Concomitant]
     Active Substance: GRANISETRON
     Indication: Product used for unknown indication
     Dosage: UNK
     Route: 065
     Dates: start: 20250611, end: 20250611
  24. DEXAMETHASONE [Concomitant]
     Active Substance: DEXAMETHASONE
     Indication: Product used for unknown indication
     Dosage: UNK
     Route: 065
     Dates: start: 20250611, end: 20250614
  25. METHYLPREDNISOLONE [Concomitant]
     Active Substance: METHYLPREDNISOLONE
     Indication: Product used for unknown indication
     Dosage: UNK
     Route: 065
     Dates: start: 20250702, end: 20250717
  26. MORPHINE [Concomitant]
     Active Substance: MORPHINE
     Indication: Product used for unknown indication
     Dosage: UNK
     Route: 065
     Dates: start: 20250702, end: 20250717
  27. FUROSEMIDE [Concomitant]
     Active Substance: FUROSEMIDE
     Indication: Product used for unknown indication
     Dosage: UNK
     Route: 065
  28. GLYCOPYRRONIUM [Concomitant]
     Active Substance: GLYCOPYRRONIUM
     Indication: Product used for unknown indication
     Dosage: UNK
     Route: 065
  29. SULFAMETHOXAZOLE\TRIMETHOPRIM [Concomitant]
     Active Substance: SULFAMETHOXAZOLE\TRIMETHOPRIM
     Indication: Product used for unknown indication
     Dosage: UNK
     Route: 065
     Dates: start: 20250711, end: 20250715
  30. BECLOMETHASONE DIPROPIONATE\FORMOTEROL FUMARATE\GLYCOPYRROLATE [Concomitant]
     Active Substance: BECLOMETHASONE DIPROPIONATE\FORMOTEROL FUMARATE\GLYCOPYRROLATE
     Indication: Product used for unknown indication
     Dosage: UNK
     Route: 065
     Dates: start: 20250702, end: 20250816

REACTIONS (12)
  - Respiratory failure [Fatal]
  - Pneumonia [Fatal]
  - Chronic obstructive pulmonary disease [Fatal]
  - Dyspnoea [Unknown]
  - Pleural effusion [Unknown]
  - Asthenia [Unknown]
  - Dysstasia [Unknown]
  - Confusional state [Unknown]
  - Somnolence [Unknown]
  - Dependence [Unknown]
  - Respiratory distress [Unknown]
  - Delirium [Unknown]

NARRATIVE: CASE EVENT DATE: 20250628
